FAERS Safety Report 8029485-9 (Version None)
Quarter: 2012Q1

REPORT INFORMATION
  Report Type: 
  Country: None (occurrence: None)
  Receive Date: 20120109
  Receipt Date: 20120102
  Transmission Date: 20120608
  Serious: Yes (Hospitalization)
  Sender: FDA-Public Use
  Company Number: NL-AMGEN-NLDCT2012000669

PATIENT
  Age: 58 Year
  Sex: Male

DRUGS (7)
  1. ETANERCEPT [Suspect]
     Indication: PSORIASIS
     Dosage: 50 MG, 2 TIMES/WK
     Dates: start: 20060629
  2. LISINOPRIL [Concomitant]
     Dosage: UNK
  3. OMEPRAZOLE [Concomitant]
     Dosage: UNK
  4. ASCAL                              /00002702/ [Concomitant]
     Dosage: UNK
  5. METFORMIN HCL [Concomitant]
     Dosage: UNK
  6. COLCHICINE [Concomitant]
     Dosage: UNK
  7. SIMVASTATIN [Concomitant]
     Dosage: UNK

REACTIONS (2)
  - PERICARDITIS [None]
  - PNEUMONIA [None]
